FAERS Safety Report 7426324-1 (Version None)
Quarter: 2011Q2

REPORT INFORMATION
  Report Type: 
  Country: None (occurrence: None)
  Receive Date: 20110420
  Receipt Date: 20110411
  Transmission Date: 20111010
  Serious: Yes (Other)
  Sender: FDA-Public Use
  Company Number: B0712851A

PATIENT
  Sex: Male
  Weight: 15 kg

DRUGS (12)
  1. METHOTREXATE [Concomitant]
     Indication: IMMUNOSUPPRESSION
     Dosage: 5MG PER DAY
     Route: 065
     Dates: start: 20100901, end: 20100906
  2. BROACT [Concomitant]
     Dosage: 400MG PER DAY
     Route: 042
     Dates: start: 20100828, end: 20100904
  3. KYTRIL [Concomitant]
     Dosage: 2MG PER DAY
     Route: 042
     Dates: end: 20100829
  4. NEOPHAGEN C [Concomitant]
     Dosage: 40ML PER DAY
     Route: 042
     Dates: end: 20100908
  5. GANCICLOVIR [Concomitant]
     Dosage: 80MG PER DAY
     Route: 042
     Dates: end: 20100830
  6. ALKERAN [Suspect]
     Indication: CORD BLOOD TRANSPLANT THERAPY
     Dosage: 70MGM2 PER DAY
     Route: 042
     Dates: start: 20100824, end: 20100824
  7. FLUDARABINE PHOSPHATE [Suspect]
     Indication: CORD BLOOD TRANSPLANT THERAPY
     Dosage: 30MGM2 PER DAY
     Route: 042
     Dates: start: 20100824, end: 20100829
  8. ALFAROL [Concomitant]
     Dosage: 1ML PER DAY
     Route: 048
     Dates: start: 20100824
  9. BAKTAR [Concomitant]
     Dosage: 1G PER DAY
     Route: 048
     Dates: start: 20100824
  10. ALKERAN [Suspect]
     Dosage: 70MGM2 PER DAY
     Route: 042
     Dates: start: 20100828, end: 20100829
  11. SANDIMMUNE [Suspect]
     Indication: IMMUNOSUPPRESSION
     Dosage: 40MG PER DAY
     Route: 065
     Dates: start: 20100830
  12. ETOPOSIDE [Suspect]
     Indication: CORD BLOOD TRANSPLANT THERAPY
     Dosage: 100MGM2 PER DAY
     Route: 042
     Dates: start: 20100828, end: 20100829

REACTIONS (1)
  - FEBRILE NEUTROPENIA [None]
